FAERS Safety Report 26164223 (Version 1)
Quarter: 2025Q4

REPORT INFORMATION
  Report Type: Spontaneous
  Country: US (occurrence: US)
  Receive Date: 20251216
  Receipt Date: 20251216
  Transmission Date: 20260118
  Serious: No
  Sender: SANOFI AVENTIS
  Company Number: US-SA-2025SA372137

PATIENT
  Age: 36 Year
  Sex: Male
  Weight: 98.18 kg

DRUGS (2)
  1. DUPIXENT [Suspect]
     Active Substance: DUPILUMAB
     Indication: Eosinophilic oesophagitis
     Dosage: 300 MG, QW
     Route: 058
  2. EOHILIA [Concomitant]
     Active Substance: BUDESONIDE
     Dosage: UNK
     Route: 065

REACTIONS (6)
  - Skin exfoliation [Unknown]
  - Skin erosion [Unknown]
  - Pain [Unknown]
  - Tinnitus [Unknown]
  - Skin wrinkling [Unknown]
  - Arthralgia [Unknown]

NARRATIVE: CASE EVENT DATE: 20251128
